FAERS Safety Report 10353159 (Version 1)
Quarter: 2014Q3

REPORT INFORMATION
  Report Type: Spontaneous
  Country: JP (occurrence: JP)
  Receive Date: 20140730
  Receipt Date: 20140730
  Transmission Date: 20150326
  Serious: Yes (Hospitalization)
  Sender: FDA-Public Use
  Company Number: PHHY2013JP159021

PATIENT

DRUGS (3)
  1. ZOMETA [Suspect]
     Active Substance: ZOLEDRONIC ACID
     Indication: METASTASES TO BONE
     Dates: start: 20090701
  2. HORMONES [Concomitant]
     Active Substance: UNSPECIFIED INGREDIENT
     Dates: start: 200906
  3. TAXOTERE [Concomitant]
     Active Substance: DOCETAXEL

REACTIONS (2)
  - Osteonecrosis of jaw [Unknown]
  - Gingivitis [Unknown]

NARRATIVE: CASE EVENT DATE: 201006
